FAERS Safety Report 23509102 (Version 4)
Quarter: 2024Q2

REPORT INFORMATION
  Report Type: Report from Study
  Country: CH (occurrence: CH)
  Receive Date: 20240210
  Receipt Date: 20240405
  Transmission Date: 20240715
  Serious: Yes (Death, Hospitalization)
  Sender: FDA-Public Use
  Company Number: CH-ABBVIE-5630871

PATIENT
  Sex: Male
  Weight: 57 kg

DRUGS (7)
  1. CARBIDOPA\LEVODOPA [Suspect]
     Active Substance: CARBIDOPA\LEVODOPA
     Indication: Parkinson^s disease
     Dosage: 1 CARTRIDGE, FREQUENCY PER DAY
     Route: 050
     Dates: start: 201409, end: 20240207
  2. CARBIDOPA\LEVODOPA [Suspect]
     Active Substance: CARBIDOPA\LEVODOPA
     Dosage: RUN RATE OF THE DUODOPA PUMP WAS INCREASED TO 3.1 ML/H
     Route: 050
  3. AMOXICILLIN\CLAVULANATE POTASSIUM [Concomitant]
     Active Substance: AMOXICILLIN\CLAVULANATE POTASSIUM
     Indication: Product used for unknown indication
     Dosage: 2.2 G
     Route: 042
     Dates: start: 20240124, end: 20240129
  4. VITAMINS [Concomitant]
     Active Substance: VITAMINS
     Indication: Product used for unknown indication
     Dosage: ESTABLISHED FOR A TOTAL OF 10 DAYS
  5. THIAMINE HYDROCHLORIDE [Concomitant]
     Active Substance: THIAMINE HYDROCHLORIDE
     Indication: Product used for unknown indication
     Dosage: ESTABLISHED FOR A TOTAL OF 10 DAYS
  6. ASCORBIC ACID\MINERALS\VITAMINS [Concomitant]
     Active Substance: ASCORBIC ACID\MINERALS\VITAMINS
     Indication: Product used for unknown indication
     Dosage: MULTIVITAMINS WITH OTHER MINERALS?ESTABLISHED FOR A TOTAL OF 10 DAYS
  7. POTASSIUM PHOSPHATE [Concomitant]
     Active Substance: POTASSIUM PHOSPHATE
     Indication: Product used for unknown indication

REACTIONS (11)
  - Pneumonia aspiration [Fatal]
  - Pain in extremity [Unknown]
  - Diet refusal [Unknown]
  - Enteral nutrition [Unknown]
  - Device dislocation [Unknown]
  - Muscle rigidity [Unknown]
  - C-reactive protein increased [Unknown]
  - Influenza [Unknown]
  - Refeeding syndrome [Unknown]
  - Device delivery system issue [Unknown]
  - Aspiration [Recovered/Resolved]

NARRATIVE: CASE EVENT DATE: 20240101
